FAERS Safety Report 4608462-1 (Version None)
Quarter: 2005Q1

REPORT INFORMATION
  Report Type: 
  Country: None (occurrence: None)
  Receive Date: 20050311
  Receipt Date: 20050311
  Transmission Date: 20050727
  Serious: No
  Sender: FDA-Public Use
  Company Number: None

PATIENT
  Sex: Female
  Weight: 71 kg

DRUGS (1)
  1. INTERFERON -ALFA -2B [Suspect]
     Dosage: 20 MU/M2 QD IV FOR 5 CONSECUTIVE DAYS OUT OF 7 (M-F) EVERY WEEK TIMES 4 WEEKS
     Route: 042
     Dates: start: 20030407

REACTIONS (5)
  - APHASIA [None]
  - APRAXIA [None]
  - CEREBRAL ATROPHY [None]
  - CONFUSIONAL STATE [None]
  - EXPRESSIVE LANGUAGE DISORDER [None]
